FAERS Safety Report 7569764-2 (Version None)
Quarter: 2011Q2

REPORT INFORMATION
  Report Type: 
  Country: None (occurrence: None)
  Receive Date: 20110621
  Receipt Date: 20110621
  Transmission Date: 20111010
  Serious: Yes (Other)
  Sender: FDA-Public Use
  Company Number: None

PATIENT
  Age: 46 Year
  Sex: Female
  Weight: 112.4921 kg

DRUGS (1)
  1. SINGULAIR [Suspect]
     Indication: SINUS DISORDER
     Dosage: 1 TAB AT BED TIME EVERY NIGHT
     Dates: start: 20110518

REACTIONS (7)
  - CHEST PAIN [None]
  - ASTHENIA [None]
  - HEADACHE [None]
  - SINUS DISORDER [None]
  - NAUSEA [None]
  - GAIT DISTURBANCE [None]
  - FEELING JITTERY [None]
